FAERS Safety Report 7979686-0 (Version None)
Quarter: 2011Q4

REPORT INFORMATION
  Report Type: 
  Country: None (occurrence: None)
  Receive Date: 20111129
  Receipt Date: 20110810
  Transmission Date: 20120403
  Serious: Yes (Other)
  Sender: FDA-Public Use
  Company Number: PHEH2011US01386

PATIENT
  Age: 58 Year
  Sex: Male

DRUGS (2)
  1. EXFORGE HCT (VALSARTAN, AMLODIPINE, HYDROCHLOROTHIAZIDE) UNKNOWN, 10/3 [Suspect]
     Dosage: 1 DF, QD
  2. DIOVAN [Suspect]
     Dosage: 320 MG, QD

REACTIONS (3)
  - MALAISE [None]
  - HEADACHE [None]
  - BLOOD PRESSURE INCREASED [None]
